FAERS Safety Report 13086851 (Version 2)
Quarter: 2018Q3

REPORT INFORMATION
  Report Type: Report from Study
  Country: US (occurrence: US)
  Receive Date: 20170104
  Receipt Date: 20180831
  Transmission Date: 20181010
  Serious: No
  Sender: FDA-Public Use
  Company Number: PHEH2016US034207

PATIENT
  Age: 40 Year
  Sex: Female

DRUGS (1)
  1. GILENYA [Suspect]
     Active Substance: FINGOLIMOD HYDROCHLORIDE
     Indication: MULTIPLE SCLEROSIS
     Dosage: 0.5 MG, QD
     Route: 048

REACTIONS (10)
  - Paraesthesia [Unknown]
  - Frustration tolerance decreased [Unknown]
  - Fatigue [Unknown]
  - Hypoaesthesia [Unknown]
  - Gait disturbance [Unknown]
  - Localised infection [Unknown]
  - Hangnail [Unknown]
  - Temperature intolerance [Unknown]
  - Fall [Unknown]
  - Muscle spasticity [Unknown]

NARRATIVE: CASE EVENT DATE: 201801
